FAERS Safety Report 7289461-0 (Version None)
Quarter: 2011Q1

REPORT INFORMATION
  Report Type: 
  Country: None (occurrence: None)
  Receive Date: 20110211
  Receipt Date: 20110202
  Transmission Date: 20110831
  Serious: Yes (Hospitalization, Other)
  Sender: FDA-Public Use
  Company Number: US-US-EMD SERONO, INC.-236947J08USA

PATIENT
  Sex: Male

DRUGS (2)
  1. PROVIGIL [Concomitant]
     Route: 065
  2. REBIF [Suspect]
     Indication: MULTIPLE SCLEROSIS
     Route: 058
     Dates: start: 20070314, end: 20101101

REACTIONS (3)
  - PRECANCEROUS SKIN LESION [None]
  - HAEMATOCHEZIA [None]
  - MELANOCYTIC NAEVUS [None]
